FAERS Safety Report 6137132-6 (Version None)
Quarter: 2009Q1

REPORT INFORMATION
  Report Type: 
  Country: None (occurrence: None)
  Receive Date: 20090330
  Receipt Date: 20090320
  Transmission Date: 20090719
  Serious: Yes (Hospitalization, Other)
  Sender: FDA-Public Use
  Company Number: US-ELI_LILLY_AND_COMPANY-US200903005392

PATIENT
  Sex: Female

DRUGS (12)
  1. HUMALOG [Suspect]
     Indication: TYPE 2 DIABETES MELLITUS
     Dosage: 38 U, EACH MORNING
     Dates: start: 20000101
  2. HUMALOG [Suspect]
     Dosage: 18 U, EACH EVENING
     Dates: start: 20000101
  3. LEVOXYL [Concomitant]
  4. SERTRALINE HCL [Concomitant]
  5. NITROGLYCERIN [Concomitant]
  6. ASPIRIN [Concomitant]
  7. IMDUR [Concomitant]
  8. METOPROLOL [Concomitant]
  9. LIPITOR [Concomitant]
  10. LISINOPRIL [Concomitant]
  11. LASIX [Concomitant]
  12. DIPYRIDAMOLE [Concomitant]

REACTIONS (4)
  - ARTHRITIS [None]
  - JOINT RANGE OF MOTION DECREASED [None]
  - LIFE EXPECTANCY SHORTENED [None]
  - MYOCARDIAL INFARCTION [None]
